FAERS Safety Report 5681148-0 (Version None)
Quarter: 2008Q1

REPORT INFORMATION
  Report Type: 
  Country: None (occurrence: None)
  Receive Date: 20080326
  Receipt Date: 20061229
  Transmission Date: 20080703
  Serious: No
  Sender: FDA-Public Use
  Company Number: US-BAYER-US-2006-040976

PATIENT
  Age: 44 Year
  Sex: Female

DRUGS (3)
  1. MIRENA [Suspect]
     Indication: CONTRACEPTION
     Route: 015
     Dates: start: 20061129, end: 20061227
  2. SYNTHROID [Concomitant]
  3. CELEXA [Concomitant]

REACTIONS (3)
  - INTRA-UTERINE CONTRACEPTIVE DEVICE EXPELLED [None]
  - METRORRHAGIA [None]
  - POLYMENORRHAGIA [None]
